FAERS Safety Report 9178742 (Version 1)
Quarter: 2013Q1

REPORT INFORMATION
  Report Type: Spontaneous
  Country: US (occurrence: US)
  Receive Date: 20130321
  Receipt Date: 20130321
  Transmission Date: 20140127
  Serious: Yes (Hospitalization)
  Sender: FDA-Public Use
  Company Number: US-BRISTOL-MYERS SQUIBB COMPANY-17474131

PATIENT
  Age: 66 Year
  Sex: Male

DRUGS (10)
  1. SPRYCEL [Suspect]
     Indication: CHRONIC MYELOID LEUKAEMIA
  2. BOSULIF [Suspect]
     Indication: CHRONIC MYELOID LEUKAEMIA
     Dates: start: 20130111
  3. ALBUTEROL [Concomitant]
  4. ATORVASTATIN [Concomitant]
  5. LASIX [Concomitant]
  6. CITALOPRAM [Concomitant]
  7. METOPROLOL [Concomitant]
  8. POTASSIUM CHLORIDE [Concomitant]
  9. ASPIRIN [Concomitant]
  10. GLYCOLAX [Concomitant]

REACTIONS (4)
  - Cardiac failure congestive [Recovered/Resolved]
  - Emphysema [Recovered/Resolved]
  - Pericardial effusion [Recovered/Resolved with Sequelae]
  - Pleural effusion [Recovered/Resolved with Sequelae]
